FAERS Safety Report 17710632 (Version 3)
Quarter: 2021Q1

REPORT INFORMATION
  Report Type: Report from Study
  Country: CO (occurrence: CO)
  Receive Date: 20200427
  Receipt Date: 20210225
  Transmission Date: 20210419
  Serious: Yes (Hospitalization, Other)
  Sender: FDA-Public Use
  Company Number: CO-ASTELLAS-2020US012384

PATIENT
  Age: 48 Year
  Sex: Female
  Weight: 56 kg

DRUGS (4)
  1. TACROLIMUS. [Suspect]
     Active Substance: TACROLIMUS
     Route: 048
     Dates: start: 202002
  2. MYCOPHENOLATE [Concomitant]
     Active Substance: MYCOPHENOLIC ACID
     Indication: PRODUCT USED FOR UNKNOWN INDICATION
     Route: 048
     Dates: start: 20161107
  3. TACROLIMUS. [Suspect]
     Active Substance: TACROLIMUS
     Dosage: 3 MG (2 MG IN THE MORNING AND 1 MG AT NIGHT)
     Route: 048
  4. TACROLIMUS. [Suspect]
     Active Substance: TACROLIMUS
     Indication: LIVER TRANSPLANT
     Dosage: 2 MG, TWICE DAILY (4 CAPSULES OF 1 MG)
     Route: 048
     Dates: start: 20161107

REACTIONS (11)
  - Inflammation [Recovering/Resolving]
  - Insomnia [Unknown]
  - Immunosuppressant drug level decreased [Unknown]
  - Haematoma [Unknown]
  - Product supply issue [Unknown]
  - Mouth injury [Unknown]
  - Haematochezia [Recovered/Resolved]
  - Memory impairment [Recovering/Resolving]
  - Product availability issue [Unknown]
  - Headache [Unknown]
  - Vein disorder [Recovering/Resolving]

NARRATIVE: CASE EVENT DATE: 2018
